FAERS Safety Report 19289027 (Version 2)
Quarter: 2021Q3

REPORT INFORMATION
  Report Type: Spontaneous
  Country: US (occurrence: US)
  Receive Date: 20210521
  Receipt Date: 20210713
  Transmission Date: 20211014
  Serious: No
  Sender: FDA-Public Use
  Company Number: US-MYLANLABS-2021M1026537

PATIENT
  Sex: Female

DRUGS (1)
  1. ESTRADIOL. [Suspect]
     Active Substance: ESTRADIOL
     Indication: HORMONE REPLACEMENT THERAPY
     Dosage: 0.1 MILLIGRAM, QD (BIWEEKLY)
     Route: 062
     Dates: start: 201911

REACTIONS (7)
  - Breast cyst [Unknown]
  - Drug ineffective [Unknown]
  - Breast tenderness [Unknown]
  - Breast pain [Unknown]
  - Mood swings [Unknown]
  - Condition aggravated [Unknown]
  - Libido disorder [Unknown]
